FAERS Safety Report 7699556-5 (Version None)
Quarter: 2011Q3

REPORT INFORMATION
  Report Type: 
  Country: None (occurrence: None)
  Receive Date: 20110822
  Receipt Date: 20110810
  Transmission Date: 20111222
  Serious: Yes (Life-Threatening)
  Sender: FDA-Public Use
  Company Number: FR-AMGEN-FRASP2011040994

PATIENT
  Age: 59 Year
  Sex: Male

DRUGS (8)
  1. ENBREL [Suspect]
     Indication: PRODUCT USED FOR UNKNOWN INDICATION
     Dosage: 25 MG, EVERY 10 DAYS
     Route: 058
     Dates: start: 20040501, end: 20110115
  2. TRIATEC                            /00885601/ [Concomitant]
     Dosage: 2 DF, 1X/DAY
  3. NEBIVOLOL HCL [Concomitant]
     Dosage: 1 DF, 1X/DAY
  4. AMIODARONE HCL [Concomitant]
     Dosage: 1 DF, 1X/DAY
  5. POTASSIUM CHLORIDE [Concomitant]
     Dosage: 1 DF, 1X/DAY
  6. CRESTOR [Concomitant]
     Dosage: 1 DF, 1X/DAY
  7. ASPIRIN [Concomitant]
     Dosage: 1 DF, 1X/DAY
  8. FUROSEMIDE [Concomitant]
     Dosage: 20 MG, 1X/DAY

REACTIONS (3)
  - METASTASES TO LIVER [None]
  - NEOPLASM MALIGNANT [None]
  - NEUROENDOCRINE CARCINOMA [None]
